FAERS Safety Report 8203929-1 (Version None)
Quarter: 2012Q1

REPORT INFORMATION
  Report Type: 
  Country: None (occurrence: None)
  Receive Date: 20120313
  Receipt Date: 20120306
  Transmission Date: 20120608
  Serious: Yes (Hospitalization)
  Sender: FDA-Public Use
  Company Number: US-BAYER-2012-023004

PATIENT
  Age: 37 Year
  Sex: Female
  Weight: 119.7 kg

DRUGS (8)
  1. IBUPROFEN (ADVIL) [Concomitant]
  2. ALBUTEROL [Concomitant]
  3. YASMIN [Suspect]
     Route: 048
  4. METHYLDOPA [Concomitant]
  5. NAPROXEN (ALEVE) [Concomitant]
  6. COLACE [Concomitant]
  7. LORTAB [Concomitant]
  8. YAZ [Suspect]
     Route: 048

REACTIONS (1)
  - DEEP VEIN THROMBOSIS [None]
